FAERS Safety Report 19312924 (Version 1)
Quarter: 2021Q2

REPORT INFORMATION
  Report Type: Spontaneous
  Country: US (occurrence: US)
  Receive Date: 20210526
  Receipt Date: 20210526
  Transmission Date: 20210717
  Serious: No
  Sender: FDA-Public Use
  Company Number: None

PATIENT
  Age: 26 Year
  Sex: Female

DRUGS (1)
  1. CYCLOSPORINE (NON?MOD) 100MG APOTEX [Suspect]
     Active Substance: CYCLOSPORINE
     Indication: APLASTIC ANAEMIA
     Route: 048
     Dates: start: 202102

REACTIONS (3)
  - Palpitations [None]
  - Alcohol use [None]
  - Chest pain [None]

NARRATIVE: CASE EVENT DATE: 20210515
